FAERS Safety Report 24743496 (Version 1)
Quarter: 2024Q4

REPORT INFORMATION
  Report Type: Spontaneous
  Country: CN (occurrence: CN)
  Receive Date: 20241217
  Receipt Date: 20241217
  Transmission Date: 20250115
  Serious: Yes (Hospitalization, Other)
  Sender: BAXTER
  Company Number: None

PATIENT
  Age: 4 Year
  Sex: Male
  Weight: 14 kg

DRUGS (9)
  1. CYCLOPHOSPHAMIDE [Suspect]
     Active Substance: CYCLOPHOSPHAMIDE
     Indication: Renal cancer
     Dosage: 0.8 G, QD, DILUTED WITH 250 ML OF (4: 1) GLUCOSE AND SODIUM CHLORIDE
     Route: 041
     Dates: start: 20240719, end: 20240720
  2. CYCLOPHOSPHAMIDE [Suspect]
     Active Substance: CYCLOPHOSPHAMIDE
     Indication: Chemotherapy
  3. DEXTROSE\SODIUM CHLORIDE [Suspect]
     Active Substance: DEXTROSE\SODIUM CHLORIDE
     Indication: Medication dilution
     Dosage: 250 ML (4:1), QD, USED TO DILUTE 0.8 G OF CYCLOPHOSPHAMIDE
     Route: 041
     Dates: start: 20240719, end: 20240719
  4. SODIUM CHLORIDE [Suspect]
     Active Substance: SODIUM CHLORIDE
     Indication: Medication dilution
     Dosage: 250 ML (0.9%), QD, USED TO DILUTE 20 MG OF EPIRUBICIN HYDROCHLORIDE
     Route: 041
     Dates: start: 20240719, end: 20240719
  5. SODIUM CHLORIDE [Suspect]
     Active Substance: SODIUM CHLORIDE
     Dosage: 50 ML (0.9%), QD, USED TO DILUTE 2 MG OF VINDESINE SULFATE
     Route: 041
     Dates: start: 20240719, end: 20240720
  6. EPIRUBICIN [Suspect]
     Active Substance: EPIRUBICIN
     Indication: Renal cancer
     Dosage: 20 MG, QD, DILUTED WITH 250 ML OF 0.9% SODIUM CHLORIDE
     Route: 041
     Dates: start: 20240719, end: 20240720
  7. EPIRUBICIN [Suspect]
     Active Substance: EPIRUBICIN
     Indication: Chemotherapy
  8. VINDESINE SULFATE [Suspect]
     Active Substance: VINDESINE SULFATE
     Indication: Renal cancer
     Dosage: 2 MG, QD, DILUTED WITH 50 ML OF 0.9% SODIUM CHLORIDE
     Route: 041
     Dates: start: 20240719, end: 20240719
  9. VINDESINE SULFATE [Suspect]
     Active Substance: VINDESINE SULFATE
     Indication: Chemotherapy

REACTIONS (1)
  - Myelosuppression [Recovering/Resolving]

NARRATIVE: CASE EVENT DATE: 20240728
